FAERS Safety Report 7915841-3 (Version None)
Quarter: 2011Q4

REPORT INFORMATION
  Report Type: 
  Country: None (occurrence: None)
  Receive Date: 20111115
  Receipt Date: 20110805
  Transmission Date: 20120403
  Serious: No
  Sender: FDA-Public Use
  Company Number: US-BAYER-2011-071739

PATIENT
  Age: 73 Year
  Sex: Female

DRUGS (6)
  1. ALEVE (CAPLET) [Suspect]
     Indication: BACK PAIN
     Dosage: 2 DF, QD
     Route: 048
     Dates: start: 20110803
  2. CHOLEST-OFF [Concomitant]
  3. INSULIN [Concomitant]
  4. ANTIHYPERTENSIVES [Concomitant]
  5. TYLENOL EXTRA STRENGTH [Concomitant]
  6. ZETIA [Concomitant]

REACTIONS (1)
  - CONTUSION [None]
